FAERS Safety Report 6579377-7 (Version None)
Quarter: 2010Q1

REPORT INFORMATION
  Report Type: 
  Country: None (occurrence: None)
  Receive Date: 20100212
  Receipt Date: 20100201
  Transmission Date: 20100710
  Serious: Yes (Other)
  Sender: FDA-Public Use
  Company Number: BR-ELI_LILLY_AND_COMPANY-BR201002000914

PATIENT
  Age: 17 Year
  Sex: Female

DRUGS (1)
  1. PROZAC [Suspect]
     Dosage: UNK, UNKNOWN
     Route: 065
     Dates: start: 20061201, end: 20070618

REACTIONS (11)
  - BLOOD CREATININE INCREASED [None]
  - BLOOD PRESSURE INCREASED [None]
  - BLOOD UREA INCREASED [None]
  - ERYSIPELAS [None]
  - GENERALISED OEDEMA [None]
  - HAEMATOCRIT ABNORMAL [None]
  - HYPERKALAEMIA [None]
  - HYPERURICAEMIA [None]
  - NEPHROLITHIASIS [None]
  - OLIGURIA [None]
  - RESPIRATORY FAILURE [None]
